FAERS Safety Report 19294470 (Version 1)
Quarter: 2021Q2

REPORT INFORMATION
  Report Type: Spontaneous
  Country: US (occurrence: US)
  Receive Date: 20210524
  Receipt Date: 20210524
  Transmission Date: 20210717
  Serious: Yes (Other)
  Sender: FDA-Public Use
  Company Number: US-GLAXOSMITHKLINE-US2021GSK106766

PATIENT
  Sex: Female

DRUGS (5)
  1. ZANTAC [Suspect]
     Active Substance: RANITIDINE HYDROCHLORIDE
     Indication: GASTRIC BYPASS
     Dosage: 150 MG, QD
     Route: 065
     Dates: start: 200901, end: 201701
  2. RANITIDINE. [Suspect]
     Active Substance: RANITIDINE
     Indication: GASTRIC BYPASS
     Dosage: UNK, QD
     Route: 065
     Dates: start: 200901, end: 201701
  3. RANITIDINE. [Suspect]
     Active Substance: RANITIDINE
     Indication: GASTRIC BYPASS
     Dosage: UNK, QD
     Route: 065
     Dates: start: 200901, end: 201701
  4. RANITIDINE CAPSULE [Suspect]
     Active Substance: RANITIDINE
     Indication: GASTRIC BYPASS
     Dosage: 150 MG, QD
     Route: 065
     Dates: start: 200901, end: 201701
  5. RANITIDINE. [Suspect]
     Active Substance: RANITIDINE
     Indication: GASTRIC BYPASS
     Dosage: UNK, QD
     Route: 065
     Dates: start: 200901, end: 201701

REACTIONS (3)
  - Lung neoplasm malignant [Unknown]
  - Hepatic cancer [Unknown]
  - Breast cancer [Unknown]
